FAERS Safety Report 11486322 (Version 1)
Quarter: 2015Q3

REPORT INFORMATION
  Report Type: Spontaneous
  Country: US (occurrence: US)
  Receive Date: 20150909
  Receipt Date: 20150909
  Transmission Date: 20151125
  Serious: Yes (Other)
  Sender: FDA-Public Use
  Company Number: US-CELGENEUS-USA-2015090765

PATIENT
  Sex: Female
  Weight: 48.12 kg

DRUGS (2)
  1. THALOMID [Suspect]
     Active Substance: THALIDOMIDE
     Route: 048
     Dates: start: 201203
  2. THALOMID [Suspect]
     Active Substance: THALIDOMIDE
     Indication: BONE MARROW TRANSPLANT
     Route: 048
     Dates: start: 201011

REACTIONS (1)
  - Arthralgia [Unknown]
